FAERS Safety Report 22858238 (Version 2)
Quarter: 2023Q4

REPORT INFORMATION
  Report Type: Spontaneous
  Country: US (occurrence: US)
  Receive Date: 20230824
  Receipt Date: 20231005
  Transmission Date: 20240109
  Serious: No
  Sender: FDA-Public Use
  Company Number: US-AMGEN-USASP2023149475

PATIENT
  Age: 76 Year
  Sex: Female

DRUGS (1)
  1. REPATHA [Suspect]
     Active Substance: EVOLOCUMAB
     Indication: Cardiovascular disorder
     Dosage: 140 MILLIGRAM, Q2WK
     Route: 058
     Dates: start: 202308

REACTIONS (6)
  - Pain [Unknown]
  - Fatigue [Unknown]
  - Diarrhoea [Unknown]
  - Constipation [Unknown]
  - Back pain [Unknown]
  - Injection site pain [Unknown]

NARRATIVE: CASE EVENT DATE: 20230801
